FAERS Safety Report 8925493 (Version 1)
Quarter: 2012Q4

REPORT INFORMATION
  Report Type: Report from Study
  Country: ES (occurrence: ES)
  Receive Date: 20121126
  Receipt Date: 20121126
  Transmission Date: 20130627
  Serious: Yes (Hospitalization)
  Sender: FDA-Public Use
  Company Number: ES-ROCHE-1156027

PATIENT
  Age: 50 Year
  Sex: Female
  Weight: 63 kg

DRUGS (4)
  1. PERTUZUMAB [Suspect]
     Indication: BREAST CANCER
     Dosage: Initial dose of 840 mg
     Route: 042
     Dates: start: 20121003, end: 20121107
  2. TRASTUZUMAB [Suspect]
     Indication: BREAST CANCER
     Route: 042
     Dates: start: 20121003, end: 20121107
  3. DOCETAXEL [Suspect]
     Indication: BREAST CANCER
     Route: 042
     Dates: start: 20121003, end: 20121107
  4. FILGRASTIM [Concomitant]
     Indication: PROPHYLAXIS
     Dosage: r/dx 6 days
     Route: 065
     Dates: start: 20121104, end: 20121107

REACTIONS (3)
  - Haemolytic anaemia [Recovered/Resolved]
  - Hyperbilirubinaemia [Recovered/Resolved]
  - Thrombocytopenia [Recovered/Resolved]
